FAERS Safety Report 6706712-9 (Version None)
Quarter: 2010Q2

REPORT INFORMATION
  Report Type: 
  Country: None (occurrence: None)
  Receive Date: 20100503
  Receipt Date: 20100428
  Transmission Date: 20101027
  Serious: Yes (Life-Threatening, Hospitalization)
  Sender: FDA-Public Use
  Company Number: FR-ROCHE-700269

PATIENT
  Sex: Male

DRUGS (2)
  1. ROCEPHIN [Suspect]
     Dosage: FREQUENCY: SINGLE INTAKE
     Route: 030
     Dates: start: 20090301
  2. CEFTRIAXONE [Suspect]
     Route: 065

REACTIONS (4)
  - ANAPHYLACTIC REACTION [None]
  - BRONCHOSPASM [None]
  - MYOCARDIAL INFARCTION [None]
  - SKIN TEST POSITIVE [None]
